FAERS Safety Report 10348157 (Version 2)
Quarter: 2014Q3

REPORT INFORMATION
  Report Type: Report from Study
  Country: US (occurrence: US)
  Receive Date: 20140729
  Receipt Date: 20140825
  Transmission Date: 20150326
  Serious: Yes (Hospitalization, Other)
  Sender: FDA-Public Use
  Company Number: PHEH2014US014891

PATIENT
  Age: 14 Year
  Sex: Female
  Weight: 48.8 kg

DRUGS (7)
  1. TOBRAMYCIN [Concomitant]
     Active Substance: TOBRAMYCIN
     Dosage: UKN
  2. PULMOZYME [Concomitant]
     Active Substance: DORNASE ALFA
     Dosage: UKN
  3. SALINE [Concomitant]
     Active Substance: SODIUM CHLORIDE
     Dosage: UKN
  4. SYMBICORT [Concomitant]
     Active Substance: BUDESONIDE\FORMOTEROL FUMARATE DIHYDRATE
     Dosage: UKN
  5. IPRATROPIUM [Concomitant]
     Active Substance: IPRATROPIUM
     Dosage: UKN
  6. TOBI [Suspect]
     Active Substance: TOBRAMYCIN
     Indication: CYSTIC FIBROSIS
     Dosage: 300MG/5ML, TWICE A DAY
     Route: 055
  7. ALBUTEROL. [Concomitant]
     Active Substance: ALBUTEROL
     Dosage: UKN

REACTIONS (2)
  - Distal intestinal obstruction syndrome [Recovered/Resolved]
  - Intestinal obstruction [Recovered/Resolved]

NARRATIVE: CASE EVENT DATE: 20140611
